FAERS Safety Report 9486438 (Version 4)
Quarter: 2017Q3

REPORT INFORMATION
  Report Type: Spontaneous
  Country: JP (occurrence: JP)
  Receive Date: 20130829
  Receipt Date: 20170707
  Transmission Date: 20171128
  Serious: No
  Sender: FDA-Public Use
  Company Number: JP-BAYER-2013-097604

PATIENT
  Age: 75 Year
  Sex: Male

DRUGS (2)
  1. STIVARGA [Suspect]
     Active Substance: REGORAFENIB
     Indication: COLORECTAL CANCER
     Dosage: 160 MG, QD
     Route: 048
     Dates: start: 20130802, end: 20130808
  2. STIVARGA [Suspect]
     Active Substance: REGORAFENIB
     Indication: COLORECTAL CANCER
     Dosage: 120 MG, QD
     Route: 048
     Dates: start: 20130809, end: 20130820

REACTIONS (4)
  - Decreased appetite [Recovering/Resolving]
  - Pruritus [Not Recovered/Not Resolved]
  - Blood creatinine increased [Recovering/Resolving]
  - Vomiting [Not Recovered/Not Resolved]

NARRATIVE: CASE EVENT DATE: 20130805
